APPROVED DRUG PRODUCT: IBUPROFEN
Active Ingredient: IBUPROFEN
Strength: 200MG
Dosage Form/Route: TABLET;ORAL
Application: A071807 | Product #001
Applicant: SANDOZ INC
Approved: Feb 25, 1988 | RLD: No | RS: No | Type: DISCN